FAERS Safety Report 17130890 (Version 4)
Quarter: 2022Q3

REPORT INFORMATION
  Report Type: Spontaneous
  Country: US (occurrence: US)
  Receive Date: 20191209
  Receipt Date: 20220922
  Transmission Date: 20221027
  Serious: No
  Sender: FDA-Public Use
  Company Number: US-PFIZER INC-2019527089

PATIENT
  Age: 7 Year
  Sex: Male

DRUGS (2)
  1. BENEFIX [Suspect]
     Active Substance: COAGULATION FACTOR IX RECOMBINANT HUMAN\ISOPROPYL ALCOHOL
     Indication: Prophylaxis
     Dosage: 70 UNITS/KG
     Route: 042
  2. BENEFIX [Suspect]
     Active Substance: COAGULATION FACTOR IX RECOMBINANT HUMAN\ISOPROPYL ALCOHOL
     Indication: Haemorrhage
     Dosage: (120 UNITS/KG) PRN Q48H
     Route: 042

REACTIONS (3)
  - Limb injury [Unknown]
  - Intentional product misuse [Unknown]
  - Product dispensing error [Unknown]

NARRATIVE: CASE EVENT DATE: 20190101
